FAERS Safety Report 4315058-8 (Version None)
Quarter: 2004Q1

REPORT INFORMATION
  Report Type: 
  Country: None (occurrence: None)
  Receive Date: 20040310
  Receipt Date: 20040301
  Transmission Date: 20041129
  Serious: Yes (Hospitalization)
  Sender: FDA-Public Use
  Company Number: PHNR2004AU00727

PATIENT
  Age: 61 Year
  Sex: Female
  Weight: 72 kg

DRUGS (14)
  1. SANDIMMUNE [Suspect]
     Dosage: 50MG TOTAL DOSE
     Route: 042
     Dates: start: 20031201, end: 20031202
  2. RAD001 [Concomitant]
  3. AZATHIOPRINE TRIAL DRUG [Concomitant]
  4. PANAFCORTELONE [Concomitant]
  5. NEXIUM [Concomitant]
  6. BACTRIM DS [Concomitant]
  7. VALTREX [Concomitant]
  8. ALDOMET [Concomitant]
  9. PRAVACHOL [Concomitant]
  10. PREPULSID [Concomitant]
  11. MAGMIN [Concomitant]
  12. ROCEPHIN [Concomitant]
  13. RULIDE [Concomitant]
  14. ZOFRAN [Concomitant]

REACTIONS (4)
  - CHEST DISCOMFORT [None]
  - EYELID OEDEMA [None]
  - PRURITUS [None]
  - VOMITING [None]
